FAERS Safety Report 9668690 (Version 2)
Quarter: 2014Q1

REPORT INFORMATION
  Report Type: Spontaneous
  Country: CA (occurrence: CA)
  Receive Date: 20131105
  Receipt Date: 20140205
  Transmission Date: 20141002
  Serious: Yes (Life-Threatening, Hospitalization)
  Sender: FDA-Public Use
  Company Number: CA-ELI_LILLY_AND_COMPANY-CA201310007412

PATIENT
  Age: 9 Year
  Sex: Male
  Weight: 29 kg

DRUGS (7)
  1. STRATTERA [Suspect]
     Indication: ATTENTION DEFICIT/HYPERACTIVITY DISORDER
     Dosage: UNK, UNKNOWN
     Route: 065
     Dates: start: 20100222
  2. STRATTERA [Interacting]
     Dosage: 40 MG, AT BREAKFAST
     Route: 048
     Dates: start: 20121012, end: 20130328
  3. BENYLIN /00000402/ [Interacting]
     Indication: NASOPHARYNGITIS
     Dosage: 2 DF, QD
     Route: 048
     Dates: start: 20130325, end: 20130325
  4. BENYLIN /00000402/ [Interacting]
     Indication: PYREXIA
  5. CONCERTA [Concomitant]
     Dosage: UNK, UNKNOWN
     Route: 065
  6. CONCERTA [Concomitant]
     Dosage: 36 MG, 1 TABLET AT BREAKFAST
     Route: 048
  7. TYLENOL                            /00020001/ [Concomitant]
     Dosage: 80 MG, 1 TAB 1 DOSE (25-03 AT 5 P.M.)
     Route: 048

REACTIONS (11)
  - Blood pressure decreased [Unknown]
  - Convulsion [Unknown]
  - Oropharyngeal pain [Not Recovered/Not Resolved]
  - Drug ineffective [Unknown]
  - Decreased activity [Unknown]
  - Dysphagia [Unknown]
  - Rhinorrhoea [Unknown]
  - Hunger [Unknown]
  - Drug interaction [Unknown]
  - Cough [Not Recovered/Not Resolved]
  - Ear infection [Unknown]
